FAERS Safety Report 5415303-1 (Version None)
Quarter: 2007Q3

REPORT INFORMATION
  Report Type: 
  Country: None (occurrence: None)
  Receive Date: 20070815
  Receipt Date: 20070809
  Transmission Date: 20080115
  Serious: Yes (Hospitalization)
  Sender: FDA-Public Use
  Company Number: CH-ASTRAZENECA-2007PK01708

PATIENT
  Age: 84 Year
  Sex: Female
  Weight: 80 kg

DRUGS (14)
  1. NEXIUM [Suspect]
     Route: 048
     Dates: start: 20070216, end: 20070323
  2. TORASIS [Suspect]
     Indication: CARDIAC FAILURE CONGESTIVE
     Route: 048
     Dates: start: 20070227, end: 20070307
  3. LASIX [Suspect]
     Indication: CARDIAC FAILURE CONGESTIVE
     Route: 048
     Dates: start: 20070307, end: 20070323
  4. FLUOXETINE [Suspect]
     Indication: DEPRESSION
     Route: 048
     Dates: start: 20070221, end: 20070423
  5. ENOXAPARIN SODIUM [Suspect]
     Dates: start: 20070215, end: 20070302
  6. NEO-MERCAZOLE TAB [Concomitant]
     Route: 048
     Dates: start: 20070310, end: 20070322
  7. LOPRESSOR [Concomitant]
     Route: 048
     Dates: start: 20070310, end: 20070315
  8. ARICEPT [Concomitant]
     Route: 048
     Dates: start: 20070314, end: 20070322
  9. DAFALGAN [Concomitant]
     Dates: start: 20070215, end: 20070314
  10. LAXOBERON [Concomitant]
     Route: 048
     Dates: start: 20070219, end: 20070506
  11. EPRIL [Concomitant]
     Route: 048
     Dates: start: 20070216, end: 20070318
  12. LISITRIL COMP [Concomitant]
     Route: 048
     Dates: start: 20070327
  13. ACCUPAQUE [Concomitant]
     Dosage: 140 CC
     Dates: start: 20070126
  14. ACCUPAQUE [Concomitant]
     Dosage: 140 CC
     Dates: start: 20070205

REACTIONS (3)
  - LEUKOCYTOCLASTIC VASCULITIS [None]
  - RENAL FAILURE [None]
  - RENAL FAILURE ACUTE [None]
